FAERS Safety Report 9840138 (Version 1)
Quarter: 2014Q1

REPORT INFORMATION
  Report Type: Spontaneous
  Country: US (occurrence: None)
  Receive Date: 20140121
  Receipt Date: 20140121
  Transmission Date: 20141002
  Serious: Yes (Other)
  Sender: FDA-Public Use
  Company Number: None

PATIENT
  Sex: Female
  Weight: 63.5 kg

DRUGS (5)
  1. DULOXETINE [Suspect]
     Indication: MIGRAINE PROPHYLAXIS
     Route: 048
     Dates: start: 2008
  2. ALLEGRA [Concomitant]
  3. BABY ASPIRIN [Concomitant]
  4. PLAQUENIL [Concomitant]
  5. CYMBALTA [Concomitant]

REACTIONS (1)
  - Headache [None]
